FAERS Safety Report 24752364 (Version 1)
Quarter: 2024Q4

REPORT INFORMATION
  Report Type: Spontaneous
  Country: US (occurrence: US)
  Receive Date: 20241219
  Receipt Date: 20241219
  Transmission Date: 20250114
  Serious: Yes (Hospitalization)
  Sender: HETERO
  Company Number: US-AMAROX PHARMA-HET2024US04864

PATIENT
  Age: 32 Year
  Sex: Male
  Weight: 83.8 kg

DRUGS (22)
  1. DIVALPROEX SODIUM [Suspect]
     Active Substance: DIVALPROEX SODIUM
     Indication: Antipsychotic therapy
     Dosage: 1250 MILLIGRAM, Q.H.S.
     Route: 065
  2. QUETIAPINE [Suspect]
     Active Substance: QUETIAPINE
     Indication: Antipsychotic therapy
     Dosage: 100 MILLIGRAM, Q.H.S.
     Route: 065
  3. ESCITALOPRAM [Suspect]
     Active Substance: ESCITALOPRAM OXALATE
     Indication: Antipsychotic therapy
     Dosage: 10 MILLIGRAM, QD
     Route: 065
  4. ZIPRASIDONE [Suspect]
     Active Substance: ZIPRASIDONE
     Indication: Antipsychotic therapy
     Dosage: 40 MILLIGRAM, BID
     Route: 065
  5. PERPHENAZINE [Suspect]
     Active Substance: PERPHENAZINE
     Indication: Antipsychotic therapy
     Dosage: 16 MILLIGRAM, QD
     Route: 065
  6. PERPHENAZINE [Suspect]
     Active Substance: PERPHENAZINE
     Dosage: 20 MILLIGRAM, Q.H.S.
     Route: 065
  7. BENZTROPINE [Suspect]
     Active Substance: BENZTROPINE
     Indication: Antipsychotic therapy
     Dosage: 1 MILLIGRAM, BID
     Route: 065
  8. OLANZAPINE [Concomitant]
     Active Substance: OLANZAPINE
     Indication: Product used for unknown indication
     Dosage: 50 MILLIGRAM, Q.H.S.
     Route: 065
  9. OLANZAPINE [Concomitant]
     Active Substance: OLANZAPINE
     Dosage: UNK (LOWERED)
     Route: 065
  10. OLANZAPINE [Concomitant]
     Active Substance: OLANZAPINE
     Dosage: 40 MILLIGRAM, Q.H.S.
  11. ARIPIPRAZOLE [Concomitant]
     Active Substance: ARIPIPRAZOLE
     Indication: Product used for unknown indication
     Dosage: 5 MG, QD (AUGMENTED)
     Route: 065
  12. FLUOXETINE [Concomitant]
     Active Substance: FLUOXETINE HYDROCHLORIDE
     Indication: Product used for unknown indication
     Dosage: 20 MG, QD
     Route: 065
  13. FLUOXETINE [Concomitant]
     Active Substance: FLUOXETINE HYDROCHLORIDE
     Dosage: 10 MG, QD
     Route: 065
  14. AMLODIPINE [Concomitant]
     Active Substance: AMLODIPINE BESYLATE
     Indication: Product used for unknown indication
     Dosage: 10 MG, QD
     Route: 065
  15. CLOZAPINE [Concomitant]
     Active Substance: CLOZAPINE
     Indication: Product used for unknown indication
     Dosage: 37.5 MG
     Route: 065
  16. CLOZAPINE [Concomitant]
     Active Substance: CLOZAPINE
     Dosage: 75 MG
     Route: 065
  17. CLOZAPINE [Concomitant]
     Active Substance: CLOZAPINE
     Dosage: 112.5 MG
     Route: 065
  18. CLOZAPINE [Concomitant]
     Active Substance: CLOZAPINE
     Dosage: 162.5 MG
     Route: 065
  19. POLYETHYLENE GLYCOLS [Concomitant]
     Active Substance: POLYETHYLENE GLYCOLS
     Indication: Product used for unknown indication
     Dosage: 17 GRAM, QD
     Route: 065
  20. POLYETHYLENE GLYCOLS [Concomitant]
     Active Substance: POLYETHYLENE GLYCOLS
     Dosage: 17 GRAM, BID
     Route: 065
  21. TRIHEXYPHENIDYL [Concomitant]
     Active Substance: TRIHEXYPHENIDYL
     Indication: Product used for unknown indication
     Dosage: UNK (2 MG EVERY MORNING PLUS 5MG EVERY NIGHT)
     Route: 065
  22. TRIHEXYPHENIDYL [Concomitant]
     Active Substance: TRIHEXYPHENIDYL
     Dosage: 5 MG, Q.H.S.
     Route: 065

REACTIONS (2)
  - Extrapyramidal disorder [Recovering/Resolving]
  - Fall [Unknown]
